FAERS Safety Report 6790820-0 (Version None)
Quarter: 2010Q2

REPORT INFORMATION
  Report Type: 
  Country: None (occurrence: None)
  Receive Date: 20100623
  Receipt Date: 20100623
  Transmission Date: 20101027
  Serious: Yes (Hospitalization)
  Sender: FDA-Public Use
  Company Number: None

PATIENT
  Age: 3 Year
  Sex: Male
  Weight: 16.7 kg

DRUGS (1)
  1. FEIBA VH [Suspect]
     Indication: HAEMOPHILIA A WITHOUT INHIBITORS
     Dosage: 917 UNITS PRN IV BOLUS
     Route: 040
     Dates: start: 20100613, end: 20100613

REACTIONS (5)
  - BLOOD CULTURE POSITIVE [None]
  - DEVICE RELATED INFECTION [None]
  - PANTOEA AGGLOMERANS INFECTION [None]
  - PRODUCT CONTAMINATION MICROBIAL [None]
  - VOMITING [None]
